FAERS Safety Report 23326044 (Version 1)
Quarter: 2023Q4

REPORT INFORMATION
  Report Type: Spontaneous
  Country: US (occurrence: US)
  Receive Date: 20231221
  Receipt Date: 20231221
  Transmission Date: 20240110
  Serious: No
  Sender: FDA-Public Use
  Company Number: US-LEO Pharma-366095

PATIENT
  Age: 23 Year
  Sex: Female

DRUGS (1)
  1. ADBRY [Suspect]
     Active Substance: TRALOKINUMAB-LDRM
     Indication: Product used for unknown indication
     Dosage: DOSE/FREQUENCY: INJECT 4 SYRINGES UNDER THE SKIN ON DAY 1,

REACTIONS (3)
  - Chills [Unknown]
  - Rash [Unknown]
  - Pain [Unknown]
